FAERS Safety Report 9705580 (Version 2)
Quarter: 2015Q3

REPORT INFORMATION
  Report Type: Spontaneous
  Country: US (occurrence: US)
  Receive Date: 20131122
  Receipt Date: 20150803
  Transmission Date: 20151125
  Serious: No
  Sender: FDA-Public Use
  Company Number: US-GILEAD-2008-0017017

PATIENT
  Age: 72 Year
  Sex: Female

DRUGS (10)
  1. SPIRIVA [Concomitant]
     Active Substance: TIOTROPIUM BROMIDE MONOHYDRATE
  2. ATACAND [Concomitant]
     Active Substance: CANDESARTAN CILEXETIL
     Route: 048
  3. LASIX [Concomitant]
     Active Substance: FUROSEMIDE
     Route: 048
  4. K-DUR [Concomitant]
     Active Substance: POTASSIUM CHLORIDE
  5. ZYRTEC-D [Concomitant]
     Active Substance: CETIRIZINE HYDROCHLORIDE\PSEUDOEPHEDRINE HYDROCHLORIDE
     Route: 048
  6. ATIVAN [Concomitant]
     Active Substance: LORAZEPAM
     Route: 048
  7. LETAIRIS [Suspect]
     Active Substance: AMBRISENTAN
     Indication: PULMONARY HYPERTENSION
     Route: 048
  8. NASONEX [Concomitant]
     Active Substance: MOMETASONE FUROATE
  9. PROVENTIL [Concomitant]
     Active Substance: ALBUTEROL
     Route: 048
  10. SINGULAIR [Concomitant]
     Active Substance: MONTELUKAST SODIUM
     Route: 048

REACTIONS (1)
  - Constipation [None]

NARRATIVE: CASE EVENT DATE: 20080201
